FAERS Safety Report 10511309 (Version 1)
Quarter: 2014Q4

REPORT INFORMATION
  Report Type: Spontaneous
  Country: US (occurrence: US)
  Receive Date: 20141010
  Receipt Date: 20141010
  Transmission Date: 20150528
  Serious: No
  Sender: FDA-Public Use
  Company Number: US-BAYER-2014-146674

PATIENT
  Age: 82 Year
  Sex: Female

DRUGS (2)
  1. ALEVE [Suspect]
     Active Substance: NAPROXEN SODIUM
     Indication: SCIATICA
     Dosage: UNK
     Route: 048
     Dates: start: 20140927, end: 20140929
  2. PAIN STOPPER EXTRA [Suspect]
     Active Substance: ACETAMINOPHEN\ASPIRIN\CAFFEINE\SALICYLAMIDE
     Indication: SCIATICA
     Dosage: 1 DF, PRN
     Route: 048
     Dates: start: 201406, end: 2014

REACTIONS (4)
  - Epistaxis [Recovered/Resolved]
  - Incorrect drug administration duration [None]
  - Constipation [Not Recovered/Not Resolved]
  - Dyspepsia [Recovered/Resolved]

NARRATIVE: CASE EVENT DATE: 201406
